FAERS Safety Report 12492384 (Version 2)
Quarter: 2016Q3

REPORT INFORMATION
  Report Type: Spontaneous
  Country: FR (occurrence: FR)
  Receive Date: 20160623
  Receipt Date: 20160712
  Transmission Date: 20161109
  Serious: Yes (Hospitalization, Other)
  Sender: FDA-Public Use
  Company Number: FR-PFIZER INC-2016304566

PATIENT
  Age: 66 Year
  Sex: Female

DRUGS (18)
  1. DIFFU K [Concomitant]
     Active Substance: POTASSIUM CHLORIDE
     Dosage: 2 DF, 3X/DAY
     Route: 048
  2. SPASFON [Concomitant]
     Active Substance: PHLOROGLUCINOL
     Dosage: 2 DF, 3X/DAY
  3. NORDAZEPAM [Suspect]
     Active Substance: NORDAZEPAM
     Dosage: UNK
  4. LYRICA [Suspect]
     Active Substance: PREGABALIN
     Dosage: 25 MG, 1X/DAY IN THE EVENING
     Route: 048
  5. SERTRALINE [Suspect]
     Active Substance: SERTRALINE HYDROCHLORIDE
     Dosage: 50 MG, 2X/DAY
     Route: 048
  6. CERULYSE [Concomitant]
     Dosage: 1X/DAY
     Route: 001
  7. FUNGIZONE [Concomitant]
     Active Substance: AMPHOTERICIN B
     Dosage: IN THE MORNING AND IN THE EVENING
     Route: 048
  8. KEPPRA [Suspect]
     Active Substance: LEVETIRACETAM
     Dosage: 500 MG, 2X/DAY
     Route: 048
  9. LOVENOX [Concomitant]
     Active Substance: ENOXAPARIN SODIUM
     Dosage: 0.6 MG, 1X/DAY
     Route: 058
  10. BETNEVAL [Concomitant]
     Active Substance: BETAMETHASONE VALERATE
     Dosage: 1 APPLICATION, 2X/DAY
     Route: 003
  11. CODEINE [Suspect]
     Active Substance: CODEINE
     Dosage: UNK
  12. ALPRAZOLAM. [Suspect]
     Active Substance: ALPRAZOLAM
     Dosage: 0.5 MG, 3X/DAY
     Route: 048
  13. XEROQUEL [Suspect]
     Active Substance: QUETIAPINE FUMARATE
     Dosage: 8 DF OF 50 MG, SINGLE IN THE EVENING
     Route: 048
     Dates: end: 20160524
  14. ACUPAN [Suspect]
     Active Substance: NEFOPAM HYDROCHLORIDE
     Dosage: 20 MG, 3X/DAY
     Route: 048
  15. LIDOCAINE. [Concomitant]
     Active Substance: LIDOCAINE
     Dosage: UNK
  16. XEROQUEL [Suspect]
     Active Substance: QUETIAPINE FUMARATE
     Indication: DEPRESSION
     Dosage: 50 MG, DAILY TO BE PROGRESSIVELY INCREASED
     Route: 048
  17. FRESUBIN [Concomitant]
     Active Substance: AMINO ACIDS\DEXTROSE\ELECTROLYTES NOS\SOYBEAN OIL\VITAMINS
     Dosage: 500 ML, DAILY
  18. DAFALGAN [Concomitant]
     Active Substance: ACETAMINOPHEN
     Dosage: 3X/DAY 1 DF IN THE MORNING, 1 AT NOON AND 2 IN THE EVENING

REACTIONS (4)
  - Somnolence [Recovered/Resolved]
  - Pain [Recovered/Resolved]
  - Coma [Recovered/Resolved]
  - Miosis [Unknown]

NARRATIVE: CASE EVENT DATE: 201605
